FAERS Safety Report 7754169-1 (Version None)
Quarter: 2011Q3

REPORT INFORMATION
  Report Type: 
  Country: None (occurrence: None)
  Receive Date: 20110913
  Receipt Date: 20110830
  Transmission Date: 20111222
  Serious: Yes (Other)
  Sender: FDA-Public Use
  Company Number: 2011MA012728

PATIENT
  Age: 55 Year
  Sex: Male

DRUGS (4)
  1. MYCOPHENOLATE MOFETIL [Suspect]
     Indication: KERATITIS HERPETIC
     Dosage: 1000 MG;BID
  2. CYCLOSPORINE [Suspect]
     Indication: KERATITIS HERPETIC
     Dosage: 100 MG;BID
  3. CORTICOSTEROIDS (CORTICOSTEROIDS) [Suspect]
     Indication: KERATITIS HERPETIC
     Dosage: 30 MG;QD;PO
     Route: 048
  4. ACYCLOVIR [Suspect]
     Indication: KERATITIS HERPETIC
     Dosage: 400 MG;BID;PO
     Route: 048

REACTIONS (5)
  - HYPERTENSION [None]
  - LOSS OF CONSCIOUSNESS [None]
  - GRAND MAL CONVULSION [None]
  - TRANSPLANT REJECTION [None]
  - NEUROTOXICITY [None]
